FAERS Safety Report 19824840 (Version 1)
Quarter: 2021Q3

REPORT INFORMATION
  Report Type: Spontaneous
  Country: US (occurrence: US)
  Receive Date: 20210914
  Receipt Date: 20210914
  Transmission Date: 20211014
  Serious: No
  Sender: FDA-Public Use
  Company Number: US-DRREDDYS-SPO/USA/21/0139913

PATIENT
  Age: 16 Year
  Sex: Female

DRUGS (1)
  1. ZENATANE [Suspect]
     Active Substance: ISOTRETINOIN
     Indication: PRODUCT USED FOR UNKNOWN INDICATION
     Dosage: RMA ISSUE DATE: 15 JUNE 2020 12:00:00 AM, 23 JULY 2020 12:00:00 AM, 24 AUGUST 2020 12:00:00 AM, 30 S
     Dates: start: 20200615, end: 20210804

REACTIONS (1)
  - Dizziness [Not Recovered/Not Resolved]
